FAERS Safety Report 26137916 (Version 2)
Quarter: 2025Q4

REPORT INFORMATION
  Report Type: Spontaneous
  Country: EU (occurrence: EU)
  Receive Date: 20251210
  Receipt Date: 20251228
  Transmission Date: 20260117
  Serious: Yes (Death, Hospitalization, Other)
  Sender: AUROBINDO
  Company Number: EU-STADA-01495661

PATIENT
  Age: 77 Year
  Sex: Male

DRUGS (11)
  1. BENDAMUSTINE [Suspect]
     Active Substance: BENDAMUSTINE
     Indication: Chronic lymphocytic leukaemia
     Dosage: UNK (RECEIVED 5 CYCLES)
     Route: 065
  2. DOXORUBICIN [Suspect]
     Active Substance: DOXORUBICIN
     Indication: Diffuse large B-cell lymphoma
     Dosage: UNK (RECEIVED 6 CYCLES
     Route: 065
  3. PREDNISONE [Suspect]
     Active Substance: PREDNISONE
     Indication: Diffuse large B-cell lymphoma
     Dosage: UNK (RECEIVED 6 CYCLES
     Route: 065
  4. VINCRISTINE [Suspect]
     Active Substance: VINCRISTINE
     Indication: Diffuse large B-cell lymphoma
     Dosage: UNK (RECEIVED 6 CYCLES
     Route: 065
  5. RITUXIMAB [Suspect]
     Active Substance: RITUXIMAB
     Indication: Diffuse large B-cell lymphoma
     Dosage: UNK (RECEIVED 5 CYCLES)
     Route: 065
  6. RITUXIMAB [Suspect]
     Active Substance: RITUXIMAB
     Dosage: UNK (RECEIVED 6 CYCLES)
     Route: 065
  7. CYCLOPHOSPHAMIDE [Suspect]
     Active Substance: CYCLOPHOSPHAMIDE
     Indication: Diffuse large B-cell lymphoma
     Dosage: UNK (RECEIVED 6 CYCLES)
     Route: 065
  8. ACALABRUTINIB [Suspect]
     Active Substance: ACALABRUTINIB
     Indication: Diffuse large B-cell lymphoma
     Dosage: UNK
     Route: 065
     Dates: start: 20220325, end: 20220503
  9. OBINUTUZUMAB [Suspect]
     Active Substance: OBINUTUZUMAB
     Indication: Diffuse large B-cell lymphoma
     Dosage: UNK
     Route: 065
  10. AMOXICILLIN\CLAVULANIC ACID [Concomitant]
     Active Substance: AMOXICILLIN\CLAVULANIC ACID
     Indication: Evidence based treatment
     Dosage: UNK
     Route: 065
     Dates: start: 2022, end: 2022
  11. VORICONAZOLE [Concomitant]
     Active Substance: VORICONAZOLE
     Indication: Bronchopulmonary aspergillosis
     Dosage: UNK
     Route: 065

REACTIONS (4)
  - Cerebral aspergillosis [Fatal]
  - Bronchopulmonary aspergillosis [Fatal]
  - Aspergillus infection [Fatal]
  - Drug ineffective [Fatal]

NARRATIVE: CASE EVENT DATE: 20220408
